FAERS Safety Report 8379789-5 (Version None)
Quarter: 2012Q1

REPORT INFORMATION
  Report Type: 
  Country: None (occurrence: None)
  Receive Date: 20120323
  Receipt Date: 20110328
  Transmission Date: 20120608
  Serious: Yes (Hospitalization)
  Sender: FDA-Public Use
  Company Number: 163-21880-11033236

PATIENT
  Age: 49 Year
  Sex: Female
  Weight: 114.3065 kg

DRUGS (6)
  1. MAXALT [Concomitant]
  2. ZANTAC [Concomitant]
  3. REVLIMID [Suspect]
     Indication: MULTIPLE MYELOMA
     Dosage: 10 MG, DAILY FOR 28 DAYS, PO
     Route: 048
     Dates: start: 20100928
  4. SYNTHROID [Concomitant]
  5. LEVOTHYROXINE SODIUM [Concomitant]
  6. LORTAB [Concomitant]

REACTIONS (1)
  - PNEUMONIA [None]
